FAERS Safety Report 4885873-0 (Version None)
Quarter: 2006Q1

REPORT INFORMATION
  Report Type: 
  Country: None (occurrence: None)
  Receive Date: 20060120
  Receipt Date: 20060110
  Transmission Date: 20060701
  Serious: Yes (Death, Hospitalization)
  Sender: FDA-Public Use
  Company Number: US-ABBOTT-06P-163-0321578-00

PATIENT
  Sex: Male

DRUGS (1)
  1. HYTRIN [Suspect]
     Indication: HYPERTENSION
     Route: 048

REACTIONS (1)
  - CARDIAC FAILURE CONGESTIVE [None]
